FAERS Safety Report 8013718 (Version 4)
Quarter: 2012Q4

REPORT INFORMATION
  Report Type: 
  Country: US (occurrence: US)
  Receive Date: 20110628
  Receipt Date: 20121029
  Transmission Date: 20130627
  Serious: Yes (Other)
  Sender: FDA-Public Use
  Company Number: US-PFIZER INC-2011141063

PATIENT
  Age: 83 Year
  Sex: Female
  Weight: 104 kg

DRUGS (6)
  1. LIPITOR [Suspect]
     Dosage: 80 mg, 1x/day
  2. CARDURA [Suspect]
     Dosage: 2 mg, 1x/day
  3. NEURONTIN [Suspect]
     Dosage: 400 mg, 2x/day
  4. GLUCOTROL XL [Suspect]
     Indication: DIABETES
     Dosage: UNK
  5. GLUCOTROL XL [Suspect]
     Dosage: 10 mg, 2x/day
     Dates: start: 201209
  6. COZAAR [Concomitant]
     Indication: HYPERTENSION
     Dosage: 100 mg, 1x/day

REACTIONS (3)
  - Deafness [Unknown]
  - Drug ineffective [Unknown]
  - Intentional drug misuse [Unknown]
